FAERS Safety Report 17077806 (Version 1)
Quarter: 2019Q4

REPORT INFORMATION
  Report Type: Spontaneous
  Country: US (occurrence: US)
  Receive Date: 20191126
  Receipt Date: 20191126
  Transmission Date: 20200122
  Serious: No
  Sender: FDA-Public Use
  Company Number: US-009507513-1911USA007982

PATIENT
  Age: 22 Year
  Sex: Female
  Weight: 69.39 kg

DRUGS (1)
  1. NEXPLANON [Suspect]
     Active Substance: ETONOGESTREL
     Indication: CONTRACEPTION
     Dosage: ON THE RIGHT ARM, EVERY 5 YEARS
     Route: 059
     Dates: start: 20190502

REACTIONS (3)
  - Implant site pruritus [Not Recovered/Not Resolved]
  - Product use issue [Unknown]
  - Implant site swelling [Not Recovered/Not Resolved]

NARRATIVE: CASE EVENT DATE: 20191118
